FAERS Safety Report 5506780-6 (Version None)
Quarter: 2007Q4

REPORT INFORMATION
  Report Type: 
  Country: None (occurrence: None)
  Receive Date: 20071101
  Receipt Date: 20071023
  Transmission Date: 20080405
  Serious: Yes (Hospitalization)
  Sender: FDA-Public Use
  Company Number: 2007333728

PATIENT
  Age: 41 Year
  Sex: Male

DRUGS (2)
  1. IBUPROFEN [Suspect]
     Indication: SKIN WARM
     Dosage: EVERY 6 HOURS (400MG), ORAL
     Route: 048
  2. ACETAMINOPHEN/DEXTROMETHORPHAN/PSEUDOEPHEDRINE (PARACETAMOL, PSEUDOEPH [Suspect]
     Indication: ASTHENIA
     Dosage: ONE DOSE UNSPECIFIED

REACTIONS (18)
  - ASCITES [None]
  - ASTHENIA [None]
  - CARDIAC MURMUR [None]
  - DEHYDRATION [None]
  - FATIGUE [None]
  - GLOMERULONEPHRITIS [None]
  - HEADACHE [None]
  - HICCUPS [None]
  - ILEUS [None]
  - INSOMNIA [None]
  - MUCOSAL DRYNESS [None]
  - MYALGIA [None]
  - OCCULT BLOOD POSITIVE [None]
  - PLEURAL FIBROSIS [None]
  - RENAL TUBULAR NECROSIS [None]
  - RESPIRATORY RATE DECREASED [None]
  - THIRST [None]
  - URINE OUTPUT DECREASED [None]
